FAERS Safety Report 17644194 (Version 3)
Quarter: 2020Q4

REPORT INFORMATION
  Report Type: Spontaneous
  Country: US (occurrence: US)
  Receive Date: 20200408
  Receipt Date: 20201113
  Transmission Date: 20210113
  Serious: No
  Sender: FDA-Public Use
  Company Number: US-PFIZER INC-2017365359

PATIENT
  Age: 66 Year
  Sex: Female

DRUGS (21)
  1. LYRICA [Suspect]
     Active Substance: PREGABALIN
     Indication: NEURALGIA
     Dosage: 50 MG, 3X/DAY
     Route: 048
  2. PREVACID [Concomitant]
     Active Substance: LANSOPRAZOLE
     Dosage: 15 MG, DAILY
     Route: 048
  3. LYRICA [Suspect]
     Active Substance: PREGABALIN
     Dosage: 50 MG, 1XLDAY (CAPSULE BY MOUTH EVERY MORNING)
     Route: 048
  4. VITAMIN D [Concomitant]
     Active Substance: VITAMIN D NOS
     Dosage: 5000 IU, DAILY
     Route: 048
  5. PREVACID [Concomitant]
     Active Substance: LANSOPRAZOLE
     Dosage: 30 MG, 1X/DAY (30 MG BY MOUTH EVERY MORNING (BEFORE BREAKFAST))
     Route: 048
  6. LYRICA [Suspect]
     Active Substance: PREGABALIN
     Dosage: 50 MG, 2X/DAY (TAKE 2 CAPSULES BY MOUTH EVERY MORNING)
     Route: 048
  7. TESSALON [Concomitant]
     Active Substance: BENZONATATE
     Dosage: 100 MG, 3X/DAY (TAKE 1 CAPSULE, 3 TIMES DAILY)
     Route: 048
     Dates: start: 20170608
  8. VITAMIN B12 [Concomitant]
     Active Substance: CYANOCOBALAMIN
     Dosage: 1000 UG, UNK
     Dates: start: 20161207
  9. LYRICA [Suspect]
     Active Substance: PREGABALIN
     Indication: PAIN IN EXTREMITY
     Dosage: 50 MG,1X/DAY (TAKE 50 MG, NIGHTLY AT BEDTIME)
     Route: 048
  10. LYRICA [Suspect]
     Active Substance: PREGABALIN
     Indication: PAIN
     Dosage: UNK, 1X/DAY (3-4 TABS @BEDTIME)
     Route: 048
  11. LYRICA [Suspect]
     Active Substance: PREGABALIN
     Dosage: 200 MG, 1X/DAY (1 CAPSULE BY MOUTH EVERY NIGHT AT BEDTIME )
     Route: 048
  12. LIORESAL [Concomitant]
     Active Substance: BACLOFEN
     Indication: NECK PAIN
     Dosage: 20 MG, 2X/DAY (TAKE 2 TABLETS, 2 TIMES DAILY)
     Route: 048
     Dates: start: 20170410
  13. CYMBALTA [Concomitant]
     Active Substance: DULOXETINE HYDROCHLORIDE
     Indication: PAIN
     Dosage: 60 MG, DAILY [TAKE 2 CAPSULES]
     Route: 048
     Dates: start: 20170222
  14. REQUIP [Concomitant]
     Active Substance: ROPINIROLE HYDROCHLORIDE
     Dosage: 1 MG, 3X/DAY (TAKE 1 TABLET EVERY MORNING, 1 TABLET WITH EVENING MEAL AND 1 TABLET AT BEDTIME)
     Dates: start: 20170508
  15. KLONOPIN [Concomitant]
     Active Substance: CLONAZEPAM
     Dosage: 1 MG, 1X/DAY (AT BEDTIME)
     Route: 048
     Dates: start: 20170217
  16. COMPAZINE [Concomitant]
     Active Substance: PROCHLORPERAZINE MALEATE
     Dosage: 10 MG, AS NEEDED (TAKE 1 TABLET EVERY 8 HOURS AS NEEDED)
     Dates: start: 20170508
  17. ACETAMINOPHEN. [Concomitant]
     Active Substance: ACETAMINOPHEN
     Dosage: UNK
     Dates: start: 20160724
  18. BENADRYL [Concomitant]
     Active Substance: DIPHENHYDRAMINE HYDROCHLORIDE
     Dosage: 25 MG, AS NEEDED (TAKE 25 MG EVERY 6 HOURS AS NEEDED)
     Route: 048
  19. TOPROL XL [Concomitant]
     Active Substance: METOPROLOL SUCCINATE
     Dosage: 100 MG, DAILY (TAKE 1 TABLET BY MOUTH DAILY)
     Route: 048
     Dates: start: 20160523
  20. ALBUTEROL HFA [Concomitant]
     Active Substance: ALBUTEROL SULFATE
     Dosage: 2 DF, AS NEEDED (90MCG/ACTUATION, INHALE 2 PUFFS INTO THE LUNGS EVERY 4 HOURS)
     Route: 055
     Dates: start: 20170608
  21. ATROVENT [Concomitant]
     Active Substance: IPRATROPIUM BROMIDE
     Indication: RHINITIS ALLERGIC
     Dosage: 2 DF, 2X/DAY [45ML, 2 SPRAYS BY NASAL ROUTE 2 TIMES DAILY]
     Route: 045
     Dates: start: 20170222

REACTIONS (1)
  - Malaise [Unknown]
